FAERS Safety Report 18963345 (Version 1)
Quarter: 2021Q1

REPORT INFORMATION
  Report Type: Spontaneous
  Country: US (occurrence: US)
  Receive Date: 20210303
  Receipt Date: 20210303
  Transmission Date: 20210420
  Serious: Yes (Hospitalization, Other)
  Sender: FDA-Public Use
  Company Number: None

PATIENT
  Age: 43 Year
  Sex: Male
  Weight: 90 kg

DRUGS (6)
  1. VITAMINES(GENERAL) [Concomitant]
  2. ARGININE [Concomitant]
     Active Substance: ARGININE
  3. MELATONIN [Concomitant]
     Active Substance: MELATONIN
  4. ABILIFY [Suspect]
     Active Substance: ARIPIPRAZOLE
     Indication: SCHIZOPHRENIA
  5. INOSITOL [Concomitant]
     Active Substance: INOSITOL
  6. VALERIAN [Concomitant]
     Active Substance: VALERIAN

REACTIONS (1)
  - Cognitive disorder [None]

NARRATIVE: CASE EVENT DATE: 20210302
